FAERS Safety Report 6828180-9 (Version None)
Quarter: 2010Q3

REPORT INFORMATION
  Report Type: 
  Country: None (occurrence: None)
  Receive Date: 20100708
  Receipt Date: 20100708
  Transmission Date: 20110219
  Serious: Yes (Other)
  Sender: FDA-Public Use
  Company Number: None

PATIENT
  Age: 53 Year
  Sex: Female
  Weight: 116.8 kg

DRUGS (3)
  1. GEMZAR [Suspect]
     Indication: OVARIAN CANCER
     Dosage: 2000MG EVERY 15 DAYS IV
     Route: 042
     Dates: start: 20100309, end: 20100420
  2. CARBOPLATIN [Suspect]
     Indication: OVARIAN CANCER
     Dosage: 307.92 MG EVERY 15 DAYS IV
     Route: 042
     Dates: start: 20100309, end: 20100420
  3. BEVACIZUMAB [Concomitant]

REACTIONS (1)
  - NEUTROPHIL COUNT DECREASED [None]
